FAERS Safety Report 16988079 (Version 76)
Quarter: 2025Q3

REPORT INFORMATION
  Report Type: Report from Study
  Country: US (occurrence: US)
  Receive Date: 20191104
  Receipt Date: 20250925
  Transmission Date: 20251020
  Serious: Yes (Hospitalization, Other)
  Sender: TAKEDA
  Company Number: US-SHIRE-US201937172

PATIENT
  Sex: Female
  Weight: 114 kg

DRUGS (80)
  1. HUMAN IMMUNOGLOBULIN G [Suspect]
     Active Substance: HUMAN IMMUNOGLOBULIN G
     Indication: Congenital hypogammaglobulinaemia
     Dosage: 15 GRAM, 1/WEEK
     Dates: start: 20191017
  2. HUMAN IMMUNOGLOBULIN G [Suspect]
     Active Substance: HUMAN IMMUNOGLOBULIN G
     Indication: Primary immunodeficiency syndrome
  3. HUMAN IMMUNOGLOBULIN G [Suspect]
     Active Substance: HUMAN IMMUNOGLOBULIN G
     Dosage: 15 GRAM, 1/WEEK
  4. HUMAN IMMUNOGLOBULIN G [Suspect]
     Active Substance: HUMAN IMMUNOGLOBULIN G
     Dosage: 10 GRAM, 1/WEEK
     Dates: start: 20191025
  5. HUMAN IMMUNOGLOBULIN G [Suspect]
     Active Substance: HUMAN IMMUNOGLOBULIN G
     Dosage: 15 GRAM, 1/WEEK
  6. HUMAN IMMUNOGLOBULIN G [Suspect]
     Active Substance: HUMAN IMMUNOGLOBULIN G
  7. HUMAN IMMUNOGLOBULIN G [Suspect]
     Active Substance: HUMAN IMMUNOGLOBULIN G
  8. HUMAN IMMUNOGLOBULIN G [Suspect]
     Active Substance: HUMAN IMMUNOGLOBULIN G
     Dosage: 15 GRAM, 1/WEEK
  9. COVID-19 VACCINE NOS [Suspect]
     Active Substance: COVID-19 VACCINE
     Indication: COVID-19 immunisation
  10. PAXLOVID [Suspect]
     Active Substance: NIRMATRELVIR\RITONAVIR
     Indication: Product used for unknown indication
  11. DIPHENHYDRAMINE [Concomitant]
     Active Substance: DIPHENHYDRAMINE
  12. VESICARE [Concomitant]
     Active Substance: SOLIFENACIN SUCCINATE
  13. CHLORPHENIRAMINE MALEATE [Concomitant]
     Active Substance: CHLORPHENIRAMINE MALEATE
  14. KEPPRA [Concomitant]
     Active Substance: LEVETIRACETAM
  15. MELATONIN [Concomitant]
     Active Substance: MELATONIN
  16. ONDANSETRON [Concomitant]
     Active Substance: ONDANSETRON
  17. ASPIRIN [Concomitant]
     Active Substance: ASPIRIN
  18. ATORVASTATIN CALCIUM [Concomitant]
     Active Substance: ATORVASTATIN CALCIUM
     Indication: Product used for unknown indication
  19. BETAMETHASONE\CLOTRIMAZOLE [Concomitant]
     Active Substance: BETAMETHASONE\CLOTRIMAZOLE
     Indication: Product used for unknown indication
  20. EPINEPHRINE [Concomitant]
     Active Substance: EPINEPHRINE
  21. AMLODIPINE BESYLATE [Concomitant]
     Active Substance: AMLODIPINE BESYLATE
  22. MICARDIS [Concomitant]
     Active Substance: TELMISARTAN
  23. LANTUS [Concomitant]
     Active Substance: INSULIN GLARGINE
     Indication: Product used for unknown indication
  24. CICLOPIROX [Concomitant]
     Active Substance: CICLOPIROX
  25. DULOXETINE HYDROCHLORIDE [Concomitant]
     Active Substance: DULOXETINE HYDROCHLORIDE
  26. FLUTICASONE PROPIONATE [Concomitant]
     Active Substance: FLUTICASONE PROPIONATE
  27. ACETAMINOPHEN [Concomitant]
     Active Substance: ACETAMINOPHEN
     Indication: Product used for unknown indication
  28. Lmx [Concomitant]
  29. REFRESH TEARS [Concomitant]
     Active Substance: CARBOXYMETHYLCELLULOSE SODIUM
  30. ZOLPIDEM [Concomitant]
     Active Substance: ZOLPIDEM TARTRATE
  31. PREDNISONE [Concomitant]
     Active Substance: PREDNISONE
  32. FLONASE [Concomitant]
     Active Substance: FLUTICASONE PROPIONATE
     Indication: Product used for unknown indication
  33. NOVOLOG [Concomitant]
     Active Substance: INSULIN ASPART
  34. ADVAIR HFA [Concomitant]
     Active Substance: FLUTICASONE PROPIONATE\SALMETEROL XINAFOATE
  35. PULMICORT TURBUHALER [Concomitant]
     Active Substance: BUDESONIDE
     Indication: Product used for unknown indication
  36. DULOXETINE [Concomitant]
     Active Substance: DULOXETINE
     Indication: Product used for unknown indication
  37. KLOR-CON [Concomitant]
     Active Substance: POTASSIUM CHLORIDE
     Indication: Product used for unknown indication
  38. MEMANTINE [Concomitant]
     Active Substance: MEMANTINE
  39. AMLODIPINE [Concomitant]
     Active Substance: AMLODIPINE BESYLATE
     Indication: Product used for unknown indication
  40. ALBUTEROL\IPRATROPIUM [Concomitant]
     Active Substance: ALBUTEROL\IPRATROPIUM
     Indication: Product used for unknown indication
  41. MYRBETRIQ [Concomitant]
     Active Substance: MIRABEGRON
     Indication: Product used for unknown indication
  42. BUTALBITAL, ACETAMINOPHEN, AND CAFFEINE [Concomitant]
     Active Substance: ACETAMINOPHEN\BUTALBITAL\CAFFEINE
  43. SYNJARDY [Concomitant]
     Active Substance: EMPAGLIFLOZIN\METFORMIN HYDROCHLORIDE
  44. MONTELUKAST [Concomitant]
     Active Substance: MONTELUKAST
  45. DONEPEZIL [Concomitant]
     Active Substance: DONEPEZIL
  46. KRILL OIL [Concomitant]
     Active Substance: DIETARY SUPPLEMENT\KRILL OIL
  47. PANTOPRAZOLE [Concomitant]
     Active Substance: PANTOPRAZOLE
  48. SERTRALINE [Concomitant]
     Active Substance: SERTRALINE HYDROCHLORIDE
  49. LOTEMAX [Concomitant]
     Active Substance: LOTEPREDNOL ETABONATE
     Indication: Product used for unknown indication
  50. LASIX [Concomitant]
     Active Substance: FUROSEMIDE
  51. BIOTIN [Concomitant]
     Active Substance: BIOTIN
  52. CALCIUM CARBONATE\CHOLECALCIFEROL [Concomitant]
     Active Substance: CALCIUM CARBONATE\CHOLECALCIFEROL
  53. PROAIR HFA [Concomitant]
     Active Substance: ALBUTEROL SULFATE
  54. ZOFRAN [Concomitant]
     Active Substance: ONDANSETRON HYDROCHLORIDE
     Indication: Product used for unknown indication
  55. ZOLPIDEM TARTRATE [Concomitant]
     Active Substance: ZOLPIDEM TARTRATE
     Indication: Product used for unknown indication
  56. MONTELUKAST SODIUM [Concomitant]
     Active Substance: MONTELUKAST SODIUM
     Indication: Product used for unknown indication
  57. PANTOPRAZOLE SODIUM [Concomitant]
     Active Substance: PANTOPRAZOLE SODIUM
     Indication: Product used for unknown indication
  58. Compound codeine phosphate [Concomitant]
     Indication: Product used for unknown indication
  59. BUTALBITAL, ASPIRIN, CAFFEINE AND CODEINE PHOSPHATE [Concomitant]
     Active Substance: ASPIRIN\BUTALBITAL\CAFFEINE\CODEINE PHOSPHATE
     Indication: Product used for unknown indication
  60. INSULIN HUMAN [Concomitant]
     Active Substance: INSULIN HUMAN
  61. CEPHALEXIN [Concomitant]
     Active Substance: CEPHALEXIN
  62. DOXYCYCLINE HYCLATE [Concomitant]
     Active Substance: DOXYCYCLINE HYCLATE
     Indication: Product used for unknown indication
  63. VITAMIN D3 [Concomitant]
     Active Substance: CHOLECALCIFEROL
     Indication: Product used for unknown indication
  64. CLOTRIMAZOLE [Concomitant]
     Active Substance: CLOTRIMAZOLE
  65. CLINDAMYCIN [Concomitant]
     Active Substance: CLINDAMYCIN
  66. ONDANSETRON HYDROCHLORIDE [Concomitant]
     Active Substance: ONDANSETRON HYDROCHLORIDE
  67. SERTRALINE HYDROCHLORIDE [Concomitant]
     Active Substance: SERTRALINE HYDROCHLORIDE
  68. DONEPEZIL HYDROCHLORIDE [Concomitant]
     Active Substance: DONEPEZIL HYDROCHLORIDE
  69. LIDOCAINE [Concomitant]
     Active Substance: LIDOCAINE
  70. ATORVASTATIN [Concomitant]
     Active Substance: ATORVASTATIN
  71. DOXYCYCLINE [Concomitant]
     Active Substance: DOXYCYCLINE
  72. MUCINEX [Concomitant]
     Active Substance: GUAIFENESIN
  73. VITAMINS [Concomitant]
     Active Substance: VITAMINS
  74. BENZONATATE [Concomitant]
     Active Substance: BENZONATATE
  75. CLAVULANATE POTASSIUM [Concomitant]
     Active Substance: CLAVULANATE POTASSIUM
  76. AMOXICILLIN [Concomitant]
     Active Substance: AMOXICILLIN
  77. MEMANTINE [Concomitant]
     Active Substance: MEMANTINE
  78. CLINDAMYCIN HYDROCHLORIDE [Concomitant]
     Active Substance: CLINDAMYCIN HYDROCHLORIDE
  79. AMOXICILLIN AND CLAVULANATE POTASSIUM [Concomitant]
     Active Substance: AMOXICILLIN\CLAVULANATE POTASSIUM
  80. BENADRYL [Concomitant]
     Active Substance: DIPHENHYDRAMINE HYDROCHLORIDE

REACTIONS (95)
  - Squamous cell carcinoma [Recovered/Resolved]
  - Diabetes mellitus [Unknown]
  - Lower respiratory tract infection [Unknown]
  - Immunoglobulins increased [Recovering/Resolving]
  - Malignant melanoma [Unknown]
  - Bronchitis [Recovered/Resolved]
  - Immunoglobulins decreased [Recovered/Resolved]
  - Pulmonary fibrosis [Unknown]
  - Cellulitis [Unknown]
  - Cataract [Unknown]
  - Optic neuritis [Unknown]
  - Hernia [Unknown]
  - Muscle rupture [Unknown]
  - Sinusitis [Recovered/Resolved]
  - Loss of consciousness [Recovered/Resolved]
  - Musculoskeletal discomfort [Unknown]
  - Sensitivity to weather change [Unknown]
  - Sneezing [Unknown]
  - Pulmonary mass [Unknown]
  - Nasopharyngitis [Recovering/Resolving]
  - Fungal infection [Unknown]
  - Paronychia [Unknown]
  - Illness [Recovering/Resolving]
  - Ligament sprain [Unknown]
  - Infusion related reaction [Unknown]
  - Vulvovaginal mycotic infection [Unknown]
  - Infusion site injury [Unknown]
  - Dermatitis contact [Unknown]
  - Scar [Unknown]
  - Skin sensitisation [Unknown]
  - Sciatica [Unknown]
  - Weight decreased [Unknown]
  - Skin disorder [Unknown]
  - Blood immunoglobulin G decreased [Recovered/Resolved]
  - Stress [Unknown]
  - Blood glucose decreased [Recovered/Resolved]
  - Back disorder [Unknown]
  - Breast cyst [Unknown]
  - Urinary tract infection [Unknown]
  - Fall [Unknown]
  - Joint injury [Unknown]
  - Limb injury [Unknown]
  - COVID-19 [Recovering/Resolving]
  - Rotator cuff syndrome [Unknown]
  - Procedural pain [Unknown]
  - Infection [Unknown]
  - Allergy to arthropod bite [Unknown]
  - Eating disorder [Unknown]
  - Nerve compression [Unknown]
  - Blood glucose increased [Unknown]
  - Chronic sinusitis [Unknown]
  - Dehydration [Unknown]
  - Depression [Unknown]
  - Foot fracture [Unknown]
  - Sinus disorder [Unknown]
  - Solar lentigo [Unknown]
  - Bacterial infection [Unknown]
  - Bursitis [Unknown]
  - Muscle injury [Unknown]
  - Musculoskeletal pain [Unknown]
  - Product packaging quantity issue [Unknown]
  - Post procedural complication [Not Recovered/Not Resolved]
  - Confusional state [Unknown]
  - Gastrooesophageal reflux disease [Unknown]
  - Vocal cord disorder [Unknown]
  - Wrong technique in device usage process [Unknown]
  - Carpal tunnel syndrome [Unknown]
  - Rosacea [Unknown]
  - Intervertebral disc protrusion [Unknown]
  - Arthropod bite [Unknown]
  - Upper respiratory tract infection [Unknown]
  - Irritability [Unknown]
  - Infusion site haemorrhage [Unknown]
  - Asthma [Unknown]
  - Nasal congestion [Unknown]
  - Injection site swelling [Recovered/Resolved]
  - Oropharyngeal pain [Unknown]
  - Lymphadenopathy [Unknown]
  - Dyspepsia [Unknown]
  - Injection site erythema [Recovered/Resolved]
  - Infusion site pruritus [Unknown]
  - Infusion site reaction [Unknown]
  - Cough [Unknown]
  - Infusion site swelling [Unknown]
  - Infusion site erythema [Unknown]
  - Pain [Unknown]
  - Malaise [Unknown]
  - Chest discomfort [Unknown]
  - Dyspnoea [Unknown]
  - Fatigue [Recovering/Resolving]
  - Decreased appetite [Unknown]
  - Injection site pain [Unknown]
  - Vaccination failure [Unknown]
  - Product dose omission issue [Unknown]
  - Inappropriate schedule of product administration [Unknown]

NARRATIVE: CASE EVENT DATE: 20190101
